FAERS Safety Report 14416892 (Version 2)
Quarter: 2018Q1

REPORT INFORMATION
  Report Type: Spontaneous
  Country: US (occurrence: US)
  Receive Date: 20180122
  Receipt Date: 20180228
  Transmission Date: 20180509
  Serious: No
  Sender: FDA-Public Use
  Company Number: US-PFIZER INC-2018018394

PATIENT
  Age: 68 Year
  Sex: Male
  Weight: 133 kg

DRUGS (10)
  1. SYNTHROID [Concomitant]
     Active Substance: LEVOTHYROXINE SODIUM
     Indication: NEOPLASM MALIGNANT
     Dosage: 150 UG, SINGLE (ONCE)
     Route: 048
  2. INLYTA [Suspect]
     Active Substance: AXITINIB
     Dosage: 3 MG, 2X/DAY[3 MG IN MORNING AND 3 MG AT NIGHT]
  3. NORVASC [Concomitant]
     Active Substance: AMLODIPINE BESYLATE
     Indication: HYPERTENSION
     Dosage: 10 MG, 1X/DAY
     Route: 048
     Dates: start: 2015
  4. INLYTA [Suspect]
     Active Substance: AXITINIB
     Dosage: 2 MG, 2X/DAY
     Route: 048
  5. INLYTA [Suspect]
     Active Substance: AXITINIB
     Dosage: 3 MG, 1X/DAY
  6. PROTONIX [Concomitant]
     Active Substance: PANTOPRAZOLE SODIUM
     Indication: GASTROOESOPHAGEAL REFLUX DISEASE
     Dosage: 40 MG, 1X/DAY
     Route: 048
  7. INLYTA [Suspect]
     Active Substance: AXITINIB
     Indication: METASTASES TO KIDNEY
     Dosage: UNK (TAKING 3 TABLETS)
  8. VOTRIENT [Suspect]
     Active Substance: PAZOPANIB HYDROCHLORIDE
     Dosage: UNK
  9. AMLODIPINE BESILATE [Concomitant]
     Active Substance: AMLODIPINE BESYLATE
     Indication: HYPERTENSION
     Dosage: 10 MG, UNK
  10. SYNTHROID [Concomitant]
     Active Substance: LEVOTHYROXINE SODIUM
     Indication: THYROID DISORDER

REACTIONS (8)
  - Neoplasm progression [Unknown]
  - Arthralgia [Not Recovered/Not Resolved]
  - Myalgia [Not Recovered/Not Resolved]
  - Muscular weakness [Unknown]
  - Dysphonia [Not Recovered/Not Resolved]
  - Intentional product misuse [Unknown]
  - Gait inability [Unknown]
  - Neuropathy peripheral [Unknown]
